FAERS Safety Report 6490102-0 (Version None)
Quarter: 2009Q4

REPORT INFORMATION
  Report Type: 
  Country: None (occurrence: None)
  Receive Date: 20091211
  Receipt Date: 20090303
  Transmission Date: 20100525
  Serious: No
  Sender: FDA-Public Use
  Company Number: A0772363A

PATIENT
  Age: 50 Year
  Sex: Female

DRUGS (14)
  1. FLONASE [Suspect]
     Indication: MULTIPLE ALLERGIES
     Dosage: 1SPR TWICE PER DAY
     Route: 045
  2. DIAZEPAM [Suspect]
     Indication: ANXIETY
     Dosage: 10MG THREE TIMES PER DAY
     Route: 048
  3. HYDROCODONE BITARTRATE + ACETAMINOPHEN [Suspect]
     Indication: PAIN
     Route: 048
  4. HYDROXYCHLOROQUINE SULFATE [Suspect]
     Indication: ARTHRITIS
     Dosage: 200MG TWICE PER DAY
     Route: 048
  5. LISINOPRIL [Suspect]
     Indication: HYPERTENSION
     Dosage: 20MG PER DAY
     Route: 048
  6. NICOTINE [Suspect]
     Dosage: 14MG PER DAY
     Route: 062
     Dates: start: 20090201
  7. ACCOLATE [Suspect]
     Indication: ASTHMA
     Dosage: 20MG PER DAY
     Route: 048
  8. PROAIR HFA [Suspect]
     Indication: ASTHMA
     Dosage: 2PUFF AS REQUIRED
     Route: 055
  9. DIOVAN [Suspect]
     Indication: HYPERTENSION
     Dosage: 160MG IN THE MORNING
     Route: 048
  10. PHENERGAN EXPECTORANT W/ CODEINE [Suspect]
     Indication: COUGH
     Dosage: 1TSP TWICE PER DAY
     Route: 048
  11. DOXYCYCLINE [Suspect]
     Dosage: 100MG TWICE PER DAY
     Route: 048
  12. PREDNISONE [Suspect]
     Indication: ASTHMA
     Dosage: 10MG PER DAY
     Route: 048
  13. ALBUTEROL [Suspect]
     Indication: ASTHMA
     Route: 055
  14. NITROGLYCERIN [Suspect]
     Indication: CHEST PAIN
     Dosage: .4MG AS REQUIRED
     Route: 060

REACTIONS (1)
  - FALSE POSITIVE LABORATORY RESULT [None]
